FAERS Safety Report 6412066-8 (Version None)
Quarter: 2009Q4

REPORT INFORMATION
  Report Type: 
  Country: None (occurrence: None)
  Receive Date: 20091020
  Receipt Date: 20091007
  Transmission Date: 20100525
  Serious: Yes (Other)
  Sender: FDA-Public Use
  Company Number: US-1171200

PATIENT

DRUGS (5)
  1. MYDRIACYL [Suspect]
     Indication: MYDRIASIS
     Dosage: PRE-OP OPHTHALMIC
     Route: 047
  2. CYCLOGYL [Suspect]
     Indication: MYDRIASIS
     Dosage: PRE-OP OPHTHALMIC
     Route: 047
  3. VIGAMOX [Suspect]
     Indication: PROPHYLAXIS
     Dosage: PRE-OP OPHTHALMIC
     Route: 047
  4. AK-DILATE 2.5 % EYE DROPS (NOT SPECIFIIED) [Suspect]
     Indication: MYDRIASIS
     Dosage: PRE-OP OPHTHALMIC
     Route: 047
  5. OCUFEN [Suspect]
     Indication: PROPHYLAXIS
     Dosage: PRE-OP OPHTHALMIC
     Route: 047

REACTIONS (2)
  - CILIARY BODY DISORDER [None]
  - PRODUCT QUALITY ISSUE [None]
